FAERS Safety Report 18416875 (Version 1)
Quarter: 2020Q4

REPORT INFORMATION
  Report Type: Spontaneous
  Country: US (occurrence: US)
  Receive Date: 20201022
  Receipt Date: 20201022
  Transmission Date: 20210114
  Serious: Yes (Death)
  Sender: FDA-Public Use
  Company Number: US-JNJFOC-20201032354

PATIENT
  Age: 50 Year
  Sex: Male

DRUGS (1)
  1. DURAGESIC [Suspect]
     Active Substance: FENTANYL
     Indication: PRODUCT USED FOR UNKNOWN INDICATION
     Route: 062

REACTIONS (6)
  - Hepatotoxicity [Fatal]
  - Coma [Fatal]
  - Acute kidney injury [Fatal]
  - Respiratory depression [Fatal]
  - Toxicity to various agents [Fatal]
  - Rhabdomyolysis [Fatal]
